FAERS Safety Report 5192776-3 (Version None)
Quarter: 2006Q4

REPORT INFORMATION
  Report Type: 
  Country: None (occurrence: None)
  Receive Date: 20061221
  Receipt Date: 20061211
  Transmission Date: 20070319
  Serious: Yes (Other)
  Sender: FDA-Public Use
  Company Number: S06-USA-05213-02

PATIENT
  Age: 75 Year
  Sex: Female

DRUGS (1)
  1. LEXAPRO [Suspect]

REACTIONS (1)
  - RENAL DISORDER [None]
